FAERS Safety Report 17282702 (Version 1)
Quarter: 2020Q1

REPORT INFORMATION
  Report Type: Spontaneous
  Country: BF (occurrence: BF)
  Receive Date: 20200117
  Receipt Date: 20200117
  Transmission Date: 20200409
  Serious: Yes (Death, Other)
  Sender: FDA-Public Use
  Company Number: NVSC2020BF006950

PATIENT
  Age: 44 Year
  Sex: Female

DRUGS (2)
  1. GLIVEC [Suspect]
     Active Substance: IMATINIB MESYLATE
     Indication: CHRONIC MYELOID LEUKAEMIA
     Dosage: 600 MG (100 MGX6)
     Route: 065
     Dates: start: 20190220
  2. GLIVEC [Suspect]
     Active Substance: IMATINIB MESYLATE
     Indication: PRODUCT USED FOR UNKNOWN INDICATION
     Dosage: 4 DF, QD
     Route: 065
     Dates: start: 20191017

REACTIONS (10)
  - Cardiac failure [Fatal]
  - Transformation to acute myeloid leukaemia [Unknown]
  - Chronic myeloid leukaemia transformation [Unknown]
  - Hyperleukocytosis [Fatal]
  - Blast cells present [Fatal]
  - Abdominal pain upper [Fatal]
  - Septic shock [Fatal]
  - Thrombocytosis [Fatal]
  - Therapy non-responder [Fatal]
  - Pancytopenia [Fatal]

NARRATIVE: CASE EVENT DATE: 20190912
